FAERS Safety Report 8885186 (Version 1)
Quarter: 2012Q4

REPORT INFORMATION
  Report Type: 
  Country: US (occurrence: US)
  Receive Date: 20121101
  Receipt Date: 20121101
  Transmission Date: 20130627
  Serious: Yes (Other)
  Sender: FDA-Public Use
  Company Number: US-TEVA-367819USA

PATIENT
  Age: 53 Year
  Sex: Female

DRUGS (5)
  1. COPAXONE [Suspect]
     Indication: MULTIPLE SCLEROSIS
  2. XANAX [Suspect]
  3. FAMVIR [Suspect]
  4. METHOTREXATE SODIUM [Suspect]
  5. TYSABRI [Suspect]

REACTIONS (3)
  - Skin necrosis [Recovered/Resolved]
  - Herpes zoster [Recovered/Resolved]
  - Urticaria [Unknown]
